FAERS Safety Report 17762557 (Version 1)
Quarter: 2020Q2

REPORT INFORMATION
  Report Type: Spontaneous
  Country: US (occurrence: US)
  Receive Date: 20200508
  Receipt Date: 20200508
  Transmission Date: 20200714
  Serious: Yes (Other)
  Sender: FDA-Public Use
  Company Number: NVSC2020US125421

PATIENT
  Age: 3 Year
  Sex: Female

DRUGS (1)
  1. BUDESONIDE. [Suspect]
     Active Substance: BUDESONIDE
     Indication: PROTEIN-LOSING GASTROENTEROPATHY
     Dosage: UNK UNK, QD
     Route: 062

REACTIONS (3)
  - Product use in unapproved indication [Unknown]
  - Cushingoid [Unknown]
  - Growth failure [Unknown]
